FAERS Safety Report 10253856 (Version 1)
Quarter: 2014Q2

REPORT INFORMATION
  Report Type: Spontaneous
  Country: CN (occurrence: CN)
  Receive Date: 20140623
  Receipt Date: 20140623
  Transmission Date: 20141212
  Serious: Yes (Other)
  Sender: FDA-Public Use
  Company Number: CN-GILEAD-2014-0106111

PATIENT
  Sex: Male
  Weight: 62 kg

DRUGS (2)
  1. ADEFOVIR DIPIVOXIL [Suspect]
     Indication: HEPATITIS B
     Dosage: 10MG PER DAY
     Route: 048
     Dates: start: 20130124, end: 20130130
  2. HEPTODIN [Suspect]
     Indication: HEPATITIS B
     Dosage: 100MG PER DAY
     Route: 048
     Dates: start: 20130124, end: 20130130

REACTIONS (5)
  - Hepatocellular injury [Unknown]
  - Concomitant disease aggravated [Unknown]
  - Transaminases decreased [Unknown]
  - Blood bilirubin increased [Unknown]
  - Fatigue [Unknown]
